FAERS Safety Report 23048741 (Version 1)
Quarter: 2023Q4

REPORT INFORMATION
  Report Type: Spontaneous
  Country: US (occurrence: US)
  Receive Date: 20231010
  Receipt Date: 20231010
  Transmission Date: 20240110
  Serious: Yes (Disabling, Other)
  Sender: FDA-Public Use
  Company Number: US-AMGEN-USASP2023177641

PATIENT

DRUGS (1)
  1. REPATHA [Suspect]
     Active Substance: EVOLOCUMAB
     Indication: Blood cholesterol increased
     Dosage: UNK, Q3MO
     Route: 065

REACTIONS (9)
  - Rheumatoid arthritis [Unknown]
  - Chest pain [Unknown]
  - Gastrointestinal pain [Unknown]
  - Anxiety [Unknown]
  - Visual impairment [Unknown]
  - Muscular weakness [Unknown]
  - Blood pressure increased [Unknown]
  - Dizziness [Unknown]
  - Nausea [Unknown]
